FAERS Safety Report 4934799-2 (Version None)
Quarter: 2006Q1

REPORT INFORMATION
  Report Type: 
  Country: None (occurrence: None)
  Receive Date: 20060303
  Receipt Date: 20060220
  Transmission Date: 20060701
  Serious: Yes (Death, Life-Threatening, Hospitalization, Other)
  Sender: FDA-Public Use
  Company Number: 033-0981-M0000307

PATIENT
  Age: 27 Year
  Sex: Male
  Weight: 100 kg

DRUGS (6)
  1. ATORVASTATIN CALCIUM [Suspect]
     Indication: HYPERTENSION
     Dosage: 40 MG (DAILY), ORAL; SEE IMAGE
     Route: 048
     Dates: start: 19990101, end: 20000716
  2. ATORVASTATIN CALCIUM [Suspect]
     Indication: HYPERTENSION
     Dosage: 40 MG (DAILY), ORAL; SEE IMAGE
     Route: 048
     Dates: start: 20000716, end: 20000716
  3. DILTIAZEM [Suspect]
     Indication: HYPERTENSION
     Dosage: 300 MG (DAILY), ORAL; SEE IMAGE
     Route: 048
     Dates: start: 19990101, end: 20000716
  4. DILTIAZEM [Suspect]
     Indication: ILL-DEFINED DISORDER
     Dosage: 300 MG (DAILY), ORAL; SEE IMAGE
     Route: 048
     Dates: start: 19990101, end: 20000716
  5. DILTIAZEM [Suspect]
     Indication: HYPERTENSION
     Dosage: 300 MG (DAILY), ORAL; SEE IMAGE
     Route: 048
     Dates: start: 20000716, end: 20000716
  6. DILTIAZEM [Suspect]
     Indication: ILL-DEFINED DISORDER
     Dosage: 300 MG (DAILY), ORAL; SEE IMAGE
     Route: 048
     Dates: start: 20000716, end: 20000716

REACTIONS (15)
  - ATRIOVENTRICULAR BLOCK [None]
  - BRADYCARDIA [None]
  - CARDIAC DISORDER [None]
  - CAROTID ANEURYSM RUPTURE [None]
  - COMA [None]
  - DIALYSIS [None]
  - HEPATIC FAILURE [None]
  - HEPATITIS FULMINANT [None]
  - INTENTIONAL OVERDOSE [None]
  - PROTHROMBIN LEVEL DECREASED [None]
  - RENAL FAILURE [None]
  - RHABDOMYOLYSIS [None]
  - SHOCK [None]
  - SUICIDE ATTEMPT [None]
  - TRACHEAL ULCER [None]
